FAERS Safety Report 8919830 (Version 2)
Quarter: 2013Q1

REPORT INFORMATION
  Report Type: Spontaneous
  Country: US (occurrence: US)
  Receive Date: 20121121
  Receipt Date: 20130204
  Transmission Date: 20140127
  Serious: Yes (Hospitalization, Other)
  Sender: FDA-Public Use
  Company Number: US-BAYER-2012-119998

PATIENT
  Age: 37 Year
  Sex: Female
  Weight: 56.69 kg

DRUGS (15)
  1. YAZ [Suspect]
     Indication: CONTRACEPTION
     Dosage: UNK
     Dates: start: 20071206, end: 20090102
  2. YAZ [Suspect]
     Indication: ACNE
  3. YAZ [Suspect]
     Indication: PREMENSTRUAL DYSPHORIC DISORDER
  4. YAZ [Suspect]
     Indication: MENSTRUAL CYCLE MANAGEMENT
  5. OCELLA [Suspect]
     Indication: CONTRACEPTION
     Dosage: UNK
     Dates: start: 20090123, end: 20091009
  6. OCELLA [Suspect]
     Indication: ACNE
  7. OCELLA [Suspect]
     Indication: PREMENSTRUAL DYSPHORIC DISORDER
  8. YASMIN [Suspect]
     Indication: ACNE
  9. BACTRIM DS [Concomitant]
     Indication: URINARY TRACT INFECTION
     Dosage: UNK
     Dates: start: 20091106
  10. PROZAC [Concomitant]
     Dosage: UNK
     Dates: start: 20091201
  11. EFFEXOR [Concomitant]
     Dosage: 50 MG, OM
     Dates: start: 20091211
  12. ZOLOFT [Concomitant]
     Dosage: 50 MG, DAILY
     Dates: start: 20091228
  13. METOCLOPRAMIDE [Concomitant]
     Dosage: BEFORE MEALS AND 5 MG NIGHTLY
     Dates: start: 20091228
  14. CHLORDIAZEPOXIDE W/CLIDINIUM BROMIDE [Concomitant]
     Dosage: 5/2.5 MG 4 X A DAY AS NEEDED
     Dates: start: 20091228
  15. SULFA [Concomitant]
     Dosage: UNK
     Dates: start: 20091228

REACTIONS (5)
  - Gallbladder injury [None]
  - Cholecystitis chronic [None]
  - Injury [None]
  - Pain [None]
  - Pain [None]
